FAERS Safety Report 17805774 (Version 1)
Quarter: 2020Q2

REPORT INFORMATION
  Report Type: Spontaneous
  Country: TH (occurrence: TH)
  Receive Date: 20200519
  Receipt Date: 20200519
  Transmission Date: 20200714
  Serious: Yes (Other)
  Sender: FDA-Public Use
  Company Number: TH-VISTAPHARM, INC.-VER202005-000912

PATIENT
  Sex: Female

DRUGS (1)
  1. HYDROCODONE AND ACETAMINOPHEN [Suspect]
     Active Substance: ACETAMINOPHEN\HYDROCODONE
     Indication: SUICIDE ATTEMPT
     Dosage: 50 TABLETS OF 500 MG (396.8 MG/KG)

REACTIONS (3)
  - Intentional overdose [Unknown]
  - Haemolytic anaemia [Recovered/Resolved]
  - Methaemoglobinaemia [Recovered/Resolved]
